FAERS Safety Report 20765610 (Version 4)
Quarter: 2024Q1

REPORT INFORMATION
  Report Type: Spontaneous
  Country: US (occurrence: US)
  Receive Date: 20220428
  Receipt Date: 20240219
  Transmission Date: 20240410
  Serious: No
  Sender: FDA-Public Use
  Company Number: US-SA-SAC20220427000104

PATIENT
  Age: 8 Year
  Sex: Female
  Weight: 46.26 kg

DRUGS (17)
  1. DUPIXENT [Suspect]
     Active Substance: DUPILUMAB
     Indication: Dermatitis
     Dosage: 300 MG, QOW
     Route: 058
  2. DUPIXENT [Suspect]
     Active Substance: DUPILUMAB
     Indication: Asthma
     Dosage: 200 MG, QOW
     Route: 058
  3. FLUTICASONE PROPIONATE [Concomitant]
     Active Substance: FLUTICASONE PROPIONATE
     Dosage: 50 UG
  4. CETIRIZINE [Concomitant]
     Active Substance: CETIRIZINE HYDROCHLORIDE
     Dosage: 1MG
  5. XATMEP [METHOTREXATE] [Concomitant]
     Dosage: 03MG
  6. EPINEPHRINE [Concomitant]
     Active Substance: EPINEPHRINE
     Dosage: EPINEPHRINE 0.3MG/0.3 AUTO INJCT
  7. FLOVENT [Concomitant]
     Active Substance: FLUTICASONE PROPIONATE
     Dosage: 03MG
  8. ALBUTEROL SULFATE [Concomitant]
     Active Substance: ALBUTEROL SULFATE
     Dosage: ALBUTEROL SULFATE HFA 90 MCG HFA AER AD
  9. CIPROFLOXACIN [Concomitant]
     Active Substance: CIPROFLOXACIN
     Dosage: UNK
  10. DEXAMETHASONE [Concomitant]
     Active Substance: DEXAMETHASONE
     Dosage: UNK
  11. TRIAMCINOLONE ACETONIDE [Concomitant]
     Active Substance: TRIAMCINOLONE ACETONIDE
     Dosage: UNK
  12. HYDROCORTISONE [Concomitant]
     Active Substance: HYDROCORTISONE
     Dosage: UNK
  13. SSD [Concomitant]
     Active Substance: SILVER SULFADIAZINE
     Dosage: UNK
  14. HYDROXYZINE [Concomitant]
     Active Substance: HYDROXYZINE HYDROCHLORIDE
     Dosage: HYDROXYZINE HCL 10 MG/5 ML SOLUTION
  15. TACROLIMUS [Concomitant]
     Active Substance: TACROLIMUS
     Dosage: UNK
  16. PREDNISOLONE SODIUM PHOSPHATE [Concomitant]
     Active Substance: PREDNISOLONE SODIUM PHOSPHATE
     Dosage: PREDNISOLONE SODIUM PHOSPHATE, MOMETASONE FUROATE 50 MCG SPRAY/PUMP
  17. MOMETASONE FUROATE [Concomitant]
     Active Substance: MOMETASONE FUROATE
     Dosage: UNK

REACTIONS (3)
  - Injection site pain [Recovered/Resolved]
  - Lack of injection site rotation [Unknown]
  - Product use in unapproved indication [Unknown]
